FAERS Safety Report 4714165-5 (Version None)
Quarter: 2005Q3

REPORT INFORMATION
  Report Type: 
  Country: None (occurrence: None)
  Receive Date: 20050714
  Receipt Date: 20050708
  Transmission Date: 20060218
  Serious: Yes (Death, Hospitalization)
  Sender: FDA-Public Use
  Company Number: JP-ABBOTT-05P-087-0305170-00

PATIENT
  Age: 13 Year
  Sex: Female

DRUGS (7)
  1. VALPROIC ACID [Suspect]
     Indication: CONVULSION PROPHYLAXIS
     Dosage: NOT REPORTED
     Dates: start: 19770401
  2. VALPROIC ACID [Suspect]
  3. PHENOBARBITAL [Concomitant]
     Indication: CONVULSION PROPHYLAXIS
     Dosage: 0.1/DAY
  4. CARBAMAZEPINE [Concomitant]
     Indication: CONVULSION PROPHYLAXIS
     Dosage: NOT REPORTED
  5. PHENYTOIN [Concomitant]
     Indication: CONVULSION PROPHYLAXIS
     Dosage: 0.12/DAY
  6. UNSPECIFIED COUGH SUPPRESSANTS [Concomitant]
     Indication: COUGH
     Dosage: NOT REPORTED
     Dates: start: 19811224
  7. UNSPECIFIED ANTICONVULSANTS [Concomitant]
     Indication: CONVULSION PROPHYLAXIS
     Dosage: NOT REPORTED

REACTIONS (8)
  - ACIDOSIS [None]
  - CARDIAC ARREST [None]
  - CLONIC CONVULSION [None]
  - COMA [None]
  - MYDRIASIS [None]
  - PYREXIA [None]
  - RESPIRATORY ARREST [None]
  - REYE'S SYNDROME [None]
